FAERS Safety Report 4863292-0 (Version None)
Quarter: 2005Q4

REPORT INFORMATION
  Report Type: 
  Country: None (occurrence: None)
  Receive Date: 20051222
  Receipt Date: 20051117
  Transmission Date: 20060501
  Serious: Yes (Hospitalization)
  Sender: FDA-Public Use
  Company Number: JP-BOEHRINGER INGELHEIM PHARMACEUTICALS, INC.-2005-BP-20464NB

PATIENT
  Sex: Female
  Weight: 59.2 kg

DRUGS (12)
  1. MOBIC [Suspect]
     Indication: JUVENILE ARTHRITIS
     Route: 048
     Dates: end: 20051004
  2. METHOTREXATE [Suspect]
     Indication: JUVENILE ARTHRITIS
     Route: 048
  3. METHOTREXATE [Suspect]
     Route: 048
  4. PREDNISOLONE [Concomitant]
     Indication: JUVENILE ARTHRITIS
     Route: 048
     Dates: start: 19880101
  5. AZULFIDINE-EN (SALAZOSULFAPYRIDINE) [Concomitant]
     Indication: JUVENILE ARTHRITIS
     Route: 048
  6. ALFAROL [Concomitant]
     Indication: OSTEOPOROSIS
     Route: 048
  7. ZANTAC [Concomitant]
     Indication: GASTRITIS
     Route: 048
  8. LEUCOVORIN CALCIUM [Concomitant]
     Indication: DRUG TOXICITY
     Route: 048
  9. LAC-B [Concomitant]
     Indication: COLITIS
     Route: 048
  10. SELBEX [Concomitant]
     Indication: GASTRITIS
     Route: 048
  11. ALESION [Concomitant]
     Indication: PRURITUS
     Route: 048
  12. REMICADE [Concomitant]
     Indication: JUVENILE ARTHRITIS
     Route: 042
     Dates: start: 20050601

REACTIONS (5)
  - ANOREXIA [None]
  - ENTEROCOLITIS [None]
  - HEPATIC FUNCTION ABNORMAL [None]
  - LARGE INTESTINAL ULCER [None]
  - RENAL IMPAIRMENT [None]
